FAERS Safety Report 9850871 (Version 1)
Quarter: 2014Q1

REPORT INFORMATION
  Report Type: Spontaneous
  Country: US (occurrence: US)
  Receive Date: 20140128
  Receipt Date: 20140128
  Transmission Date: 20141002
  Serious: Yes (Other)
  Sender: FDA-Public Use
  Company Number: US-PFIZER INC-2014024749

PATIENT
  Sex: Female

DRUGS (1)
  1. XANAX [Suspect]
     Dosage: UNK

REACTIONS (6)
  - Drug dependence [Unknown]
  - Heart valve incompetence [Unknown]
  - Anxiety [Unknown]
  - Hypertension [Unknown]
  - Malaise [Unknown]
  - Feeling abnormal [Unknown]
